FAERS Safety Report 5040764-X (Version None)
Quarter: 2006Q2

REPORT INFORMATION
  Report Type: 
  Country: None (occurrence: None)
  Receive Date: 20060630
  Receipt Date: 20060630
  Transmission Date: 20061013
  Serious: Yes (Hospitalization)
  Sender: FDA-Public Use
  Company Number: None

PATIENT
  Age: 24 Year
  Sex: Female
  Weight: 106.1417 kg

DRUGS (1)
  1. LAMICTAL [Suspect]
     Indication: BIPOLAR DISORDER
     Dates: start: 20060407, end: 20060418

REACTIONS (6)
  - COLITIS [None]
  - DIARRHOEA [None]
  - EOSINOPHIL PERCENTAGE INCREASED [None]
  - PHARYNGITIS STREPTOCOCCAL [None]
  - STAPHYLOCOCCAL SCALDED SKIN SYNDROME [None]
  - TOXIC EPIDERMAL NECROLYSIS [None]
